FAERS Safety Report 14351143 (Version 1)
Quarter: 2018Q1

REPORT INFORMATION
  Report Type: Spontaneous
  Country: DE (occurrence: DE)
  Receive Date: 20180104
  Receipt Date: 20180104
  Transmission Date: 20180509
  Serious: Yes (Death, Life-Threatening)
  Sender: FDA-Public Use
  Company Number: DE-MYLANLABS-2018M1000215

PATIENT
  Age: 70 Year
  Sex: Female
  Weight: 64 kg

DRUGS (7)
  1. FLUOROURACIL. [Suspect]
     Active Substance: FLUOROURACIL
     Indication: METASTASES TO PERITONEUM
  2. AXIPLATIN 5 MG/ML KONZENTRAT ZUR HERSTELLUNG EINER INFUSIONSL?SUNG [Suspect]
     Active Substance: OXALIPLATIN
     Indication: COLON CANCER METASTATIC
  3. FOLINIC ACID [Suspect]
     Active Substance: LEUCOVORIN
     Indication: COLON CANCER METASTATIC
  4. AXIPLATIN 5 MG/ML KONZENTRAT ZUR HERSTELLUNG EINER INFUSIONSL?SUNG [Suspect]
     Active Substance: OXALIPLATIN
     Indication: METASTASES TO PERITONEUM
     Dosage: 50 MG/M2, CYCLE
     Route: 042
     Dates: start: 20170331, end: 20171103
  5. FLUOROURACIL. [Suspect]
     Active Substance: FLUOROURACIL
     Indication: COLON CANCER METASTATIC
     Dosage: 2000 MG/M2, CYCLE
     Route: 042
     Dates: start: 20170331, end: 20171103
  6. FOLINIC ACID [Suspect]
     Active Substance: LEUCOVORIN
     Indication: METASTASES TO PERITONEUM
     Dosage: 500 MG/M2, CYCLE
     Route: 042
     Dates: start: 20170331, end: 20171103
  7. BEVACIZUMAB. [Suspect]
     Active Substance: BEVACIZUMAB
     Indication: PRODUCT USED FOR UNKNOWN INDICATION
     Dosage: 5 MG/KG, CYCLE
     Route: 042
     Dates: start: 20170527, end: 20171103

REACTIONS (1)
  - Death [Fatal]

NARRATIVE: CASE EVENT DATE: 20171103
